FAERS Safety Report 17371685 (Version 2)
Quarter: 2020Q2

REPORT INFORMATION
  Report Type: Report from Study
  Country: US (occurrence: US)
  Receive Date: 20200205
  Receipt Date: 20200520
  Transmission Date: 20200713
  Serious: Yes (Hospitalization)
  Sender: FDA-Public Use
  Company Number: US-EISAI MEDICAL RESEARCH-EC-2020-068215

PATIENT
  Age: 59 Year
  Sex: Female

DRUGS (3)
  1. LENVIMA [Suspect]
     Active Substance: LENVATINIB
     Route: 048
     Dates: start: 20191220, end: 202001
  2. LENVIMA [Suspect]
     Active Substance: LENVATINIB
     Route: 048
     Dates: start: 2020, end: 202005
  3. LENVIMA [Suspect]
     Active Substance: LENVATINIB
     Indication: ENDOMETRIAL CANCER
     Route: 048
     Dates: start: 20191203, end: 20191219

REACTIONS (10)
  - Intestinal obstruction [Unknown]
  - Migraine [Recovered/Resolved]
  - Visual impairment [Recovered/Resolved]
  - Cystitis [Unknown]
  - Gastrointestinal pain [Unknown]
  - Gallbladder disorder [Unknown]
  - Blood pressure increased [Recovered/Resolved]
  - Fistula [Unknown]
  - Sinusitis [Unknown]
  - Bowel movement irregularity [Unknown]

NARRATIVE: CASE EVENT DATE: 2020
